FAERS Safety Report 13694232 (Version 2)
Quarter: 2017Q2

REPORT INFORMATION
  Report Type: Report from Study
  Country: US (occurrence: US)
  Receive Date: 20170627
  Receipt Date: 20170629
  Transmission Date: 20170830
  Serious: Yes (Hospitalization, Other)
  Sender: FDA-Public Use
  Company Number: US-ASTELLAS-2015US030305

PATIENT
  Age: 71 Year
  Sex: Female
  Weight: 64 kg

DRUGS (6)
  1. CLINDAMYCIN. [Concomitant]
     Active Substance: CLINDAMYCIN
     Indication: PRODUCT USED FOR UNKNOWN INDICATION
     Route: 065
  2. ERLOTINIB [Suspect]
     Active Substance: ERLOTINIB
     Indication: ADENOCARCINOMA
  3. BIOTIN [Concomitant]
     Active Substance: BIOTIN
     Indication: PRODUCT USED FOR UNKNOWN INDICATION
     Route: 065
  4. ERLOTINIB [Suspect]
     Active Substance: ERLOTINIB
     Indication: NON-SMALL CELL LUNG CANCER
     Route: 048
     Dates: start: 20130419, end: 20170319
  5. LOPERAMIDE [Concomitant]
     Active Substance: LOPERAMIDE
     Indication: PRODUCT USED FOR UNKNOWN INDICATION
     Route: 065
  6. ERLOTINIB [Suspect]
     Active Substance: ERLOTINIB
     Indication: ACQUIRED GENE MUTATION

REACTIONS (12)
  - Vomiting [Recovering/Resolving]
  - Hypertension [Unknown]
  - Malignant neoplasm progression [Unknown]
  - Constipation [Unknown]
  - Nausea [Unknown]
  - Nausea [Recovering/Resolving]
  - Vomiting [Unknown]
  - Cardiac disorder [Unknown]
  - Troponin I increased [Unknown]
  - Abdominal pain [Unknown]
  - Abdominal pain [Unknown]
  - Sinus bradycardia [Unknown]

NARRATIVE: CASE EVENT DATE: 20150801
